FAERS Safety Report 13796201 (Version 1)
Quarter: 2017Q3

REPORT INFORMATION
  Report Type: Spontaneous
  Country: BR (occurrence: BR)
  Receive Date: 20170726
  Receipt Date: 20170726
  Transmission Date: 20171127
  Serious: Yes (Other)
  Sender: FDA-Public Use
  Company Number: BR-PFIZER INC-2017321825

PATIENT
  Sex: Male

DRUGS (1)
  1. ALPROSTADIL. [Suspect]
     Active Substance: ALPROSTADIL

REACTIONS (1)
  - Necrosis [Unknown]
